FAERS Safety Report 8343645-9 (Version None)
Quarter: 2012Q2

REPORT INFORMATION
  Report Type: 
  Country: None (occurrence: None)
  Receive Date: 20120508
  Receipt Date: 20100920
  Transmission Date: 20120825
  Serious: No
  Sender: FDA-Public Use
  Company Number: US-TEVA-2010003727

PATIENT
  Sex: Female
  Weight: 67.192 kg

DRUGS (3)
  1. TREANDA [Suspect]
     Indication: LYMPHOMA
  2. RITUXIMAB [Concomitant]
  3. TREANDA [Suspect]
     Indication: CHRONIC LYMPHOCYTIC LEUKAEMIA
     Route: 042
     Dates: start: 20100520, end: 20100826

REACTIONS (1)
  - RASH [None]
